FAERS Safety Report 10345799 (Version 1)
Quarter: 2014Q3

REPORT INFORMATION
  Report Type: Spontaneous
  Country: US (occurrence: None)
  Receive Date: 20140723
  Receipt Date: 20140723
  Transmission Date: 20150326
  Serious: No
  Sender: FDA-Public Use
  Company Number: CC14-0838

PATIENT
  Age: 76 Year
  Sex: Female

DRUGS (1)
  1. DICLOFENAC SODIUM GEL 3% [Suspect]
     Active Substance: DICLOFENAC SODIUM
     Indication: PHOTOSENSITIVITY REACTION
     Dosage: APPLY TOPICALLY?
     Route: 061

REACTIONS (2)
  - Product physical issue [None]
  - Drug ineffective [None]
